FAERS Safety Report 14843331 (Version 3)
Quarter: 2018Q2

REPORT INFORMATION
  Report Type: Spontaneous
  Country: IT (occurrence: IT)
  Receive Date: 20180503
  Receipt Date: 20180529
  Transmission Date: 20180711
  Serious: Yes (Other)
  Sender: FDA-Public Use
  Company Number: IT-B.I. PHARMACEUTICALS,INC./RIDGEFIELD-2018-BI-023856

PATIENT
  Age: 56 Year
  Sex: Male
  Weight: 97 kg

DRUGS (2)
  1. SYNJARDY [Suspect]
     Active Substance: EMPAGLIFLOZIN\METFORMIN HYDROCHLORIDE
     Dosage: STRENGTH: 12.5 MG/ 1000 MG
     Route: 048
  2. SYNJARDY [Suspect]
     Active Substance: EMPAGLIFLOZIN\METFORMIN HYDROCHLORIDE
     Indication: TYPE 2 DIABETES MELLITUS
     Dosage: STRENGTH: 5 MG/1000 MG
     Route: 048
     Dates: start: 20160915

REACTIONS (10)
  - Ventricular hypertrophy [Unknown]
  - Left atrial enlargement [Unknown]
  - Carotid artery stenosis [Unknown]
  - Diastolic dysfunction [Unknown]
  - Circadian rhythm sleep disorder [Unknown]
  - Defect conduction intraventricular [Unknown]
  - Electrocardiogram QT interval abnormal [Unknown]
  - Autonomic neuropathy [Unknown]
  - Peripheral sensorimotor neuropathy [Unknown]
  - Sinus tachycardia [Unknown]
